FAERS Safety Report 10241132 (Version 1)
Quarter: 2014Q1

REPORT INFORMATION
  Report Type: Spontaneous
  Country: US (occurrence: None)
  Receive Date: 20140306
  Receipt Date: 20140306
  Transmission Date: 20141002
  Serious: Yes (Other)
  Sender: FDA-Public Use
  Company Number: 163-21880-13051058

PATIENT
  Age: 79 Year
  Sex: Male
  Weight: 82.6 kg

DRUGS (8)
  1. REVLIMID (LENALIDOMIDE) (15 MILLIGRAM, CAPSULES) [Suspect]
     Indication: PLASMA CELL MYELOMA
     Route: 048
     Dates: start: 200910
  2. DEXAMETHASONE (DEXAMETHASONE) (TABLETS) [Concomitant]
  3. LIPITOR (ATORVASTATIN) (TABLETS) [Concomitant]
  4. CLONAZEPAM (CLONAZEPAM) (TABLETS) (CLONAZEPAM) [Concomitant]
  5. TAMSULOSIN HCL (TAMSULOSIN HYDROCHLORIDE) (CAPSULES) [Concomitant]
  6. ACYCLOVIR (ACYCLOVIR) (TABLETS) [Concomitant]
  7. LUNESTA [Concomitant]
  8. PROVIGIL (MODAFINIL) (TABLETS) [Concomitant]

REACTIONS (1)
  - Deep vein thrombosis [None]
